FAERS Safety Report 9104892 (Version 4)
Quarter: 2013Q2

REPORT INFORMATION
  Report Type: Report from Study
  Country: HU (occurrence: HU)
  Receive Date: 20130219
  Receipt Date: 20130403
  Transmission Date: 20140414
  Serious: Yes (Other)
  Sender: FDA-Public Use
  Company Number: HU-ROCHE-1137310

PATIENT
  Sex: Male

DRUGS (3)
  1. XELODA [Suspect]
     Indication: COLORECTAL CANCER
     Route: 048
     Dates: start: 20120913
  2. XELODA [Suspect]
     Dosage: DOSE REDUCED
     Route: 048
  3. OXALIPLATIN [Concomitant]
     Route: 065
     Dates: start: 20120913

REACTIONS (14)
  - Haematology test abnormal [Recovering/Resolving]
  - Anaemia [Recovering/Resolving]
  - Diarrhoea [Recovered/Resolved]
  - Stress [Unknown]
  - Nausea [Not Recovered/Not Resolved]
  - Malaise [Not Recovered/Not Resolved]
  - Paraesthesia [Unknown]
  - Decreased appetite [Unknown]
  - Depression [Unknown]
  - Back pain [Unknown]
  - Pain in extremity [Unknown]
  - Asthenia [Unknown]
  - Gait disturbance [Unknown]
  - Fall [Unknown]
